FAERS Safety Report 4555648-0 (Version None)
Quarter: 2005Q1

REPORT INFORMATION
  Report Type: 
  Country: None (occurrence: None)
  Receive Date: 20050119
  Receipt Date: 20050114
  Transmission Date: 20050727
  Serious: Yes (Hospitalization)
  Sender: FDA-Public Use
  Company Number: US-JNJFOC-20050103115

PATIENT
  Sex: Female

DRUGS (3)
  1. MOTRIN SINUS [Suspect]
  2. MOTRIN SINUS [Suspect]
     Indication: DRUG USE FOR UNKNOWN INDICATION
  3. ALEVE [Suspect]
     Indication: DRUG USE FOR UNKNOWN INDICATION
     Route: 049

REACTIONS (1)
  - CEREBROVASCULAR ACCIDENT [None]
